FAERS Safety Report 4719895-7 (Version None)
Quarter: 2005Q3

REPORT INFORMATION
  Report Type: 
  Country: None (occurrence: None)
  Receive Date: 20050721
  Receipt Date: 20050110
  Transmission Date: 20060218
  Serious: No
  Sender: FDA-Public Use
  Company Number: US-GLAXOSMITHKLINE-A0540050A

PATIENT
  Age: 49 Year
  Sex: Male

DRUGS (8)
  1. AVANDIA [Suspect]
     Dosage: 4MG PER DAY
     Route: 048
     Dates: start: 20041108
  2. CARDIZEM [Concomitant]
  3. PLAVIX [Concomitant]
  4. ALTACE [Concomitant]
  5. XALATAN [Concomitant]
  6. ALPHAGAN [Concomitant]
  7. FOLIC [Concomitant]
  8. VYTORIN [Concomitant]

REACTIONS (1)
  - INCREASED APPETITE [None]
